FAERS Safety Report 23982478 (Version 1)
Quarter: 2024Q2

REPORT INFORMATION
  Report Type: Other
  Country: MA (occurrence: MA)
  Receive Date: 20240617
  Receipt Date: 20240617
  Transmission Date: 20240716
  Serious: Yes (Hospitalization)
  Sender: FDA-Public Use
  Company Number: MA-Bion-013259

PATIENT
  Age: 42 Year
  Sex: Male

DRUGS (1)
  1. DICLOFENAC POTASSIUM [Suspect]
     Active Substance: DICLOFENAC POTASSIUM
     Indication: Arthralgia

REACTIONS (1)
  - Dermatitis contact [Recovering/Resolving]
